FAERS Safety Report 4540129-0 (Version None)
Quarter: 2004Q4

REPORT INFORMATION
  Report Type: 
  Country: None (occurrence: None)
  Receive Date: 20041228
  Receipt Date: 20030605
  Transmission Date: 20050328
  Serious: Yes (Life-Threatening, Hospitalization, Disabling, Other)
  Sender: FDA-Public Use
  Company Number: US-MERCK-0306USA00815

PATIENT
  Age: 63 Year
  Sex: Female
  Weight: 62 kg

DRUGS (23)
  1. VIOXX [Suspect]
     Route: 048
     Dates: start: 20010401
  2. VIOXX [Suspect]
     Route: 048
     Dates: start: 19990903
  3. VALIUM [Concomitant]
     Route: 065
     Dates: start: 19991116
  4. SK-ERYTHROMYCIN [Concomitant]
     Indication: IMPAIRED GASTRIC EMPTYING
     Route: 065
     Dates: start: 20000717
  5. CYANOCOBALAMIN [Concomitant]
     Route: 051
  6. NITROSTAT [Concomitant]
     Route: 065
  7. SYNTHROID [Concomitant]
     Route: 065
  8. PAXIL [Concomitant]
     Route: 065
  9. LANOXIN [Concomitant]
     Route: 065
  10. SALAGEN [Concomitant]
     Route: 065
  11. CLARITIN [Concomitant]
     Route: 065
  12. ZOFRAN [Concomitant]
     Route: 065
  13. MIACALCIN [Concomitant]
     Route: 065
  14. NEURONTIN [Concomitant]
     Route: 065
  15. VITAMIN E [Concomitant]
     Route: 065
  16. PREMARIN [Concomitant]
     Route: 065
  17. ACIPHEX [Concomitant]
     Route: 065
  18. DETROL LA [Concomitant]
     Route: 065
  19. LASIX [Concomitant]
     Route: 065
  20. K-DUR [Concomitant]
     Route: 065
  21. LORAZEPAM [Concomitant]
     Route: 065
  22. PRIMIDONE [Concomitant]
     Route: 065
  23. [THERAPY UNSPECIFIED] [Concomitant]
     Route: 065

REACTIONS (25)
  - ABSCESS LIMB [None]
  - ADHESION [None]
  - ADRENAL DISORDER [None]
  - ADVERSE EVENT [None]
  - ANAEMIA [None]
  - AXILLARY MASS [None]
  - BREAST CANCER [None]
  - BREAST DISORDER [None]
  - CELLULITIS [None]
  - CSF SHUNT REMOVAL [None]
  - CYST ASPIRATION [None]
  - DISCOMFORT [None]
  - FAECAL OCCULT BLOOD POSITIVE [None]
  - FALL [None]
  - GASTROENTERITIS [None]
  - HAEMORRHOIDS [None]
  - HELICOBACTER GASTRITIS [None]
  - HYPERLIPIDAEMIA [None]
  - IRON DEFICIENCY ANAEMIA [None]
  - MYOCARDIAL INFARCTION [None]
  - NAUSEA [None]
  - POLYTRAUMATISM [None]
  - ROAD TRAFFIC ACCIDENT [None]
  - SHUNT INFECTION [None]
  - WOUND DEHISCENCE [None]
